FAERS Safety Report 10009668 (Version 2)
Quarter: 2014Q1

REPORT INFORMATION
  Report Type: Spontaneous
  Country: US (occurrence: US)
  Receive Date: 20140312
  Receipt Date: 20140312
  Transmission Date: 20141002
  Serious: Yes (Other)
  Sender: FDA-Public Use
  Company Number: US-INCYTE CORPORATION-2012IN002190

PATIENT
  Sex: 0

DRUGS (13)
  1. JAKAFI [Suspect]
     Indication: MYELOFIBROSIS
     Dosage: 20 MG, BID
     Route: 048
     Dates: start: 20120327, end: 20121127
  2. JAKAFI [Suspect]
     Dosage: UNSPECIFIED LOWER DOSE
     Dates: start: 2012
  3. JAKAFI [Suspect]
     Dosage: 5 MG, BID
  4. REVLIMID [Suspect]
  5. B COMPLETE [Concomitant]
  6. COQ10 [Concomitant]
  7. GARLIC [Concomitant]
  8. IRON [Concomitant]
  9. MULTIVITAMIN [Concomitant]
  10. VITAMIN B12 [Concomitant]
  11. VITAMIN C [Concomitant]
  12. VITAMIN D [Concomitant]
  13. VITAMIN E [Concomitant]

REACTIONS (4)
  - Anaemia [Recovered/Resolved]
  - Diarrhoea [Recovered/Resolved]
  - Blood count abnormal [Unknown]
  - Drug ineffective [Unknown]
